FAERS Safety Report 6613809-0 (Version None)
Quarter: 2010Q1

REPORT INFORMATION
  Report Type: 
  Country: None (occurrence: None)
  Receive Date: 20100225
  Receipt Date: 20100216
  Transmission Date: 20100710
  Serious: Yes (Death, Hospitalization)
  Sender: FDA-Public Use
  Company Number: DSJ-2010-00850

PATIENT
  Age: 86 Year
  Sex: Male
  Weight: 49 kg

DRUGS (9)
  1. OLMESARTAN MEDOXOMIL [Suspect]
     Indication: HYPERTENSION
     Dosage: 20 MG (20 MG,1 IN 1 D),PER ORAL
     Route: 048
     Dates: start: 20090701, end: 20100107
  2. PLAVIX [Suspect]
     Indication: CEREBRAL INFARCTION
     Dosage: 50 MG (25 MG,2 IN 1 D),PER ORAL
     Route: 048
     Dates: start: 20090701, end: 20100107
  3. TAKEPRON (LANSOPRAZOLE) (TABLET) (LANSOPRAZOLE) [Suspect]
     Indication: GASTRIC ULCER
     Dosage: 15 MG (15 MG,1 IN 1 D),PER ORAL
     Route: 048
     Dates: start: 20090701, end: 20100107
  4. SIGMART (NICORANDIL) (TABLET) (NICORANDIL) [Concomitant]
  5. MUCOSTA (REBAMIPIDE) (TABLET) (REBAMIPIDE) [Concomitant]
  6. HARNAL (TAMSULOSIN HYDROCHLORIDE) (TABLET) (TAMSULOSIN HYDROCHLORIDE) [Concomitant]
  7. EBASTEL (EBASTINE) (TABLET) (EBASTINE) [Concomitant]
  8. BIOFERMIN (LACTOBACILLUS ACIDOPHILUS, BACILLUS SUBTILIS, STREPTOCOCCUS [Concomitant]
  9. DILTIAZEM HYDROCHLORIDE [Concomitant]

REACTIONS (3)
  - LYMPHOCYTE STIMULATION TEST POSITIVE [None]
  - RENAL FAILURE ACUTE [None]
  - TUBULOINTERSTITIAL NEPHRITIS [None]
